FAERS Safety Report 4323331-2 (Version None)
Quarter: 2004Q1

REPORT INFORMATION
  Report Type: 
  Country: None (occurrence: None)
  Receive Date: 20040322
  Receipt Date: 20040305
  Transmission Date: 20041129
  Serious: Yes (Disabling)
  Sender: FDA-Public Use
  Company Number: 2004-06763

PATIENT
  Age: 40 Year
  Sex: Female
  Weight: 59 kg

DRUGS (5)
  1. TENOFOVIR DF [Suspect]
     Indication: HIV INFECTION
     Dosage: 300 MG QD PO
     Route: 048
     Dates: start: 20040112
  2. LAMIVUDINE [Suspect]
     Indication: HEPATITIS
     Dosage: 300 MG QD PO
     Route: 048
     Dates: start: 20040112
  3. LAMIVUDINE [Suspect]
     Indication: HIV INFECTION
     Dosage: 300 MG QD PO
     Route: 048
     Dates: start: 20040112
  4. ATAZANAVIR [Concomitant]
  5. RITONAVIR [Concomitant]

REACTIONS (2)
  - CONDITION AGGRAVATED [None]
  - HEPATITIS B [None]
